FAERS Safety Report 12054143 (Version 1)
Quarter: 2016Q1

REPORT INFORMATION
  Report Type: Spontaneous
  Country: US (occurrence: US)
  Receive Date: 20160209
  Receipt Date: 20160209
  Transmission Date: 20160526
  Serious: No
  Sender: FDA-Public Use
  Company Number: US-SA-2016SA014301

PATIENT
  Age: 86 Year
  Sex: Female

DRUGS (2)
  1. PRALUENT [Suspect]
     Active Substance: ALIROCUMAB
     Route: 058
     Dates: start: 20151116, end: 201601
  2. ALIROCUMAB PREFILLED PEN [Concomitant]
     Active Substance: ALIROCUMAB
     Dates: start: 20151116, end: 201601

REACTIONS (4)
  - Dry throat [Unknown]
  - Throat irritation [Unknown]
  - Myalgia [Unknown]
  - Headache [Unknown]
